FAERS Safety Report 22114072 (Version 1)
Quarter: 2023Q1

REPORT INFORMATION
  Report Type: Spontaneous
  Country: US (occurrence: None)
  Receive Date: 20230317
  Receipt Date: 20230317
  Transmission Date: 20230417
  Serious: Yes (Disabling, Other)
  Sender: FDA-Public Use
  Company Number: None

PATIENT
  Age: 26 Year
  Sex: Female
  Weight: 64.35 kg

DRUGS (5)
  1. ARTIFICIAL TEARS LUBRICANT EYE DROPS (GLYCERIN\PROPYLENE GLYCOL) [Suspect]
     Active Substance: GLYCERIN\PROPYLENE GLYCOL
     Indication: Dry eye
     Dosage: FREQUENCY : AS NEEDED;?
     Route: 047
     Dates: start: 20210801, end: 20221001
  2. LEVOTHYROXINE [Concomitant]
     Active Substance: LEVOTHYROXINE
  3. Spironolcactone [Concomitant]
  4. VITAMIN D [Concomitant]
     Active Substance: VITAMIN D NOS
  5. PROBIOTICS NOS [Concomitant]
     Active Substance: PROBIOTICS NOS

REACTIONS (3)
  - Eye ulcer [None]
  - Acanthamoeba infection [None]
  - Instillation site infection [None]

NARRATIVE: CASE EVENT DATE: 20221001
